FAERS Safety Report 6936935-5 (Version None)
Quarter: 2010Q3

REPORT INFORMATION
  Report Type: 
  Country: None (occurrence: None)
  Receive Date: 20100818
  Receipt Date: 20100803
  Transmission Date: 20110219
  Serious: Yes (Congenital Anomaly)
  Sender: FDA-Public Use
  Company Number: 2010P1000720

PATIENT
  Sex: 0

DRUGS (4)
  1. FENTANYL (NO PREF. NAME) [Suspect]
     Indication: ANAESTHESIA
     Dosage: PARN
     Dates: start: 20100525, end: 20100525
  2. CURACIT (SUXAMETHONIUM) (NO PREF. NAME) [Suspect]
     Indication: ANAESTHESIA
     Dosage: PARN
     Dates: start: 20100525, end: 20100525
  3. PENTOTHAL-NATRIUM (THIOPENTAL SODIUM) (NO PREF. NAME) [Suspect]
     Indication: ANAESTHESIA
     Dosage: PARN
     Dates: start: 20100525, end: 20100525
  4. MIDAZOLAM (NO PREF. NAME) [Suspect]
     Indication: ANAESTHESIA
     Dosage: PARN
     Dates: start: 20100525, end: 20100525

REACTIONS (6)
  - ANAESTHETIC COMPLICATION NEONATAL [None]
  - ANAPHYLACTIC REACTION [None]
  - APGAR SCORE LOW [None]
  - CAESAREAN SECTION [None]
  - LISTLESS [None]
  - MATERNAL DRUGS AFFECTING FOETUS [None]
